FAERS Safety Report 19221918 (Version 3)
Quarter: 2022Q4

REPORT INFORMATION
  Report Type: Report from Study
  Country: GB (occurrence: None)
  Receive Date: 20210505
  Receipt Date: 20221003
  Transmission Date: 20230113
  Serious: Yes (Hospitalization)
  Sender: FDA-Public Use
  Company Number: GB-ROCHE-2816464

PATIENT
  Age: 63 Year
  Sex: Male
  Weight: 86 kg

DRUGS (8)
  1. ATEZOLIZUMAB [Suspect]
     Active Substance: ATEZOLIZUMAB
     Indication: Non-small cell lung cancer
     Route: 042
     Dates: start: 20210415
  2. PREGABALIN [Concomitant]
     Active Substance: PREGABALIN
     Indication: Neuralgia
     Route: 048
     Dates: start: 202007
  3. PREGABALIN [Concomitant]
     Active Substance: PREGABALIN
     Route: 048
     Dates: start: 202007
  4. ENALAPRIL [Concomitant]
     Active Substance: ENALAPRIL
     Indication: Hypertension
     Route: 048
     Dates: start: 20210420
  5. INDAPAMIDE [Concomitant]
     Active Substance: INDAPAMIDE
     Indication: Hypertension
     Route: 048
     Dates: start: 20210420
  6. OMEPRAZOLE [Concomitant]
     Active Substance: OMEPRAZOLE
     Indication: Oesophagitis
     Route: 048
     Dates: start: 20210420
  7. ACETAMINOPHEN [Concomitant]
     Active Substance: ACETAMINOPHEN
     Indication: Pain
     Dates: start: 20210420
  8. IBUPROFEN [Concomitant]
     Active Substance: IBUPROFEN
     Route: 048
     Dates: start: 2018

REACTIONS (2)
  - Blood corticotrophin decreased [Recovered/Resolved]
  - Oesophagitis [Not Recovered/Not Resolved]

NARRATIVE: CASE EVENT DATE: 20210415
